FAERS Safety Report 9235195 (Version 1)
Quarter: 2013Q2

REPORT INFORMATION
  Report Type: Spontaneous
  Country: CA (occurrence: CA)
  Receive Date: 20130417
  Receipt Date: 20130417
  Transmission Date: 20140414
  Serious: Yes (Other)
  Sender: FDA-Public Use
  Company Number: CA-AMGEN-CANSP2013025228

PATIENT
  Age: 53 Year
  Sex: Female

DRUGS (1)
  1. ARANESP [Suspect]
     Indication: RENAL TRANSPLANT
     Dosage: 80 MUG, UNK
     Dates: start: 20101108

REACTIONS (1)
  - Surgery [Unknown]
